FAERS Safety Report 9800708 (Version 4)
Quarter: 2014Q1

REPORT INFORMATION
  Report Type: Spontaneous
  Country: JP (occurrence: JP)
  Receive Date: 20140107
  Receipt Date: 20140219
  Transmission Date: 20141002
  Serious: Yes (Hospitalization)
  Sender: FDA-Public Use
  Company Number: JP-ROCHE-1326381

PATIENT
  Age: 60 Year
  Sex: Female
  Weight: 46 kg

DRUGS (7)
  1. MIRCERA [Suspect]
     Indication: NEPHROGENIC ANAEMIA
     Route: 058
     Dates: start: 201207, end: 20130930
  2. PREDONINE [Concomitant]
     Indication: LUPUS NEPHRITIS
     Route: 048
  3. MICARDIS [Concomitant]
     Indication: HYPERTENSION
     Route: 048
     Dates: end: 20131028
  4. ATELEC [Concomitant]
     Indication: HYPERTENSION
     Route: 048
     Dates: end: 20131028
  5. KREMEZIN [Concomitant]
     Indication: LUPUS NEPHRITIS
     Route: 048
     Dates: end: 20131028
  6. LIPIDIL [Concomitant]
     Route: 048
     Dates: end: 20130826
  7. CALONAL [Concomitant]
     Route: 048

REACTIONS (1)
  - Aplasia pure red cell [Not Recovered/Not Resolved]
